FAERS Safety Report 10592408 (Version 1)
Quarter: 2014Q4

REPORT INFORMATION
  Report Type: Spontaneous
  Country: US (occurrence: None)
  Receive Date: 20141117
  Receipt Date: 20141117
  Transmission Date: 20150529
  Serious: Yes (Other)
  Sender: FDA-Public Use
  Company Number: 2014-US-014562

PATIENT
  Sex: Female
  Weight: 103.4 kg

DRUGS (1)
  1. XYREM [Suspect]
     Active Substance: SODIUM OXYBATE
     Indication: FIBROMYALGIA
     Route: 048
     Dates: start: 200502

REACTIONS (2)
  - Off label use [None]
  - Pulmonary embolism [None]

NARRATIVE: CASE EVENT DATE: 2011
